FAERS Safety Report 16410045 (Version 1)
Quarter: 2019Q2

REPORT INFORMATION
  Report Type: Spontaneous
  Country: US (occurrence: US)
  Receive Date: 20190610
  Receipt Date: 20190610
  Transmission Date: 20190711
  Serious: No
  Sender: FDA-Public Use
  Company Number: US-AMGEN-USASP2019088981

PATIENT
  Age: 65 Year
  Sex: Female

DRUGS (1)
  1. REPATHA [Suspect]
     Active Substance: EVOLOCUMAB
     Indication: HYPERCHOLESTEROLAEMIA
     Dosage: UNK
     Route: 065

REACTIONS (6)
  - Oropharyngeal pain [Unknown]
  - Pain in extremity [Unknown]
  - Back pain [Unknown]
  - Abdominal pain upper [Unknown]
  - Nasal congestion [Unknown]
  - Arthralgia [Unknown]
